FAERS Safety Report 9752667 (Version 1)
Quarter: 2013Q4

REPORT INFORMATION
  Report Type: Spontaneous
  Country: IT (occurrence: None)
  Receive Date: 20131211
  Receipt Date: 20131211
  Transmission Date: 20140711
  Serious: Yes (Hospitalization)
  Sender: FDA-Public Use
  Company Number: 2057907

PATIENT
  Age: 48 Year
  Sex: Female

DRUGS (2)
  1. GEMCITABINE HYDROCHLORIDE [Suspect]
     Indication: OVARIAN CANCER
     Dosage: (CYCLICAL) NOT OTHERWISE SPECIFIED
     Route: 042
     Dates: start: 20131107, end: 20131115
  2. BEVACIZUMAB [Concomitant]

REACTIONS (5)
  - Skin toxicity [None]
  - Lymphoedema [None]
  - Q fever [None]
  - Transaminases increased [None]
  - Blood sodium decreased [None]
